FAERS Safety Report 9132339 (Version 1)
Quarter: 2013Q1

REPORT INFORMATION
  Report Type: Spontaneous
  Country: US (occurrence: US)
  Receive Date: 20130120
  Receipt Date: 20130120
  Transmission Date: 20140127
  Serious: No
  Sender: FDA-Public Use
  Company Number: US-009507513-1301USA008708

PATIENT
  Sex: Female

DRUGS (2)
  1. PEGINTRON [Suspect]
     Dosage: 120 MICROGRAM, QW, INJECTION
  2. VICTRELIS [Suspect]
     Dosage: 800 MG, TID
     Route: 048

REACTIONS (3)
  - Intervertebral disc disorder [Unknown]
  - Alopecia [Unknown]
  - Pruritus [Unknown]
